FAERS Safety Report 6902485-5 (Version None)
Quarter: 2010Q3

REPORT INFORMATION
  Report Type: 
  Country: None (occurrence: None)
  Receive Date: 20100802
  Receipt Date: 20100802
  Transmission Date: 20110219
  Serious: Yes (Other)
  Sender: FDA-Public Use
  Company Number: None

PATIENT
  Age: 62 Year
  Sex: Male
  Weight: 72.5755 kg

DRUGS (2)
  1. LEVITRA [Suspect]
     Dosage: 1/2 1 TIME
  2. CIALIS [Suspect]
     Dosage: 1/2 1 TIME

REACTIONS (2)
  - HEADACHE [None]
  - VISUAL IMPAIRMENT [None]
